FAERS Safety Report 8881333 (Version 2)
Quarter: 2013Q2

REPORT INFORMATION
  Report Type: Spontaneous
  Country: US (occurrence: None)
  Receive Date: 20120426
  Receipt Date: 20120703
  Transmission Date: 20140414
  Serious: Yes (Other)
  Sender: FDA-Public Use
  Company Number: PHEH2012US003289

PATIENT
  Age: 57 Year
  Sex: Female
  Weight: 97.5 kg

DRUGS (9)
  1. GILENYA [Suspect]
     Indication: RELAPSING-REMITTING MULTIPLE SCLEROSIS
     Route: 048
  2. PROZAC [Concomitant]
  3. MOBIC [Concomitant]
  4. ZANAFLEX [Concomitant]
  5. VITAMIN D (ERGOCALCIFEROL) CAPSULE [Concomitant]
  6. ACIPHEX (RABEPRAZOLE SODIUM) TABLET [Concomitant]
  7. GINKGO BILOBA (GINKGO BILOBA) CAPSULE [Concomitant]
  8. VESICARE (SOLIFENACIN) TABLET [Concomitant]
  9. MULTIVITAMIN (VITAMINS NOS) [Concomitant]

REACTIONS (14)
  - Insomnia [None]
  - Gastroenteritis viral [None]
  - Heart rate irregular [None]
  - Dyspnoea [None]
  - Multiple sclerosis [None]
  - Disease progression [None]
  - Romberg test positive [None]
  - Hypoaesthesia [None]
  - Paraesthesia [None]
  - Gait disturbance [None]
  - Feeling abnormal [None]
  - Fatigue [None]
  - Diarrhoea [None]
  - Dehydration [None]
